FAERS Safety Report 5500106-X (Version None)
Quarter: 2007Q4

REPORT INFORMATION
  Report Type: 
  Country: None (occurrence: None)
  Receive Date: 20071024
  Receipt Date: 20071013
  Transmission Date: 20080405
  Serious: Yes (Death, Disabling, Other)
  Sender: FDA-Public Use
  Company Number: 2007-03425

PATIENT
  Age: -1 Year
  Sex: Female

DRUGS (1)
  1. VELCADE [Suspect]
     Indication: MULTIPLE MYELOMA
     Dosage: INTRAVENOUS
     Route: 042

REACTIONS (3)
  - DISEASE PROGRESSION [None]
  - PERIPHERAL MOTOR NEUROPATHY [None]
  - POLYNEUROPATHY [None]
